FAERS Safety Report 25364887 (Version 1)
Quarter: 2025Q2

REPORT INFORMATION
  Report Type: Report from Study
  Country: US (occurrence: US)
  Receive Date: 20250527
  Receipt Date: 20250527
  Transmission Date: 20250716
  Serious: Yes (Death)
  Sender: DAIICHI
  Company Number: US-DSJP-DSU-2024-118684

PATIENT
  Age: 32 Year
  Sex: Female

DRUGS (3)
  1. ENHERTU [Suspect]
     Active Substance: FAM-TRASTUZUMAB DERUXTECAN-NXKI
     Indication: Agranulocytosis
     Route: 042
     Dates: start: 20230712, end: 20230712
  2. ENHERTU [Suspect]
     Active Substance: FAM-TRASTUZUMAB DERUXTECAN-NXKI
     Dosage: 466.83 MG, ONCE EVERY 3 WK
     Route: 065
     Dates: start: 20231213, end: 20231213
  3. ENHERTU [Suspect]
     Active Substance: FAM-TRASTUZUMAB DERUXTECAN-NXKI
     Dosage: 431 MG, ONCE EVERY 3 WK
     Route: 065
     Dates: start: 20240628, end: 20240628

REACTIONS (3)
  - Death [Fatal]
  - Therapy change [Recovered/Resolved]
  - Off label use [Unknown]

NARRATIVE: CASE EVENT DATE: 20230712
